FAERS Safety Report 12409248 (Version 2)
Quarter: 2016Q2

REPORT INFORMATION
  Report Type: Spontaneous
  Country: DE (occurrence: US)
  Receive Date: 20160526
  Receipt Date: 20160609
  Transmission Date: 20160815
  Serious: Yes (Other)
  Sender: FDA-Public Use
  Company Number: US-MERZ NORTH AMERICA, INC.-16MRZ-00317

PATIENT
  Age: 54 Year
  Sex: Female

DRUGS (1)
  1. XEOMIN [Suspect]
     Active Substance: INCOBOTULINUMTOXINA
     Indication: FACIAL SPASM
     Dosage: 12-36 UNITS (EVERY 3 TO 4 MONTHS)

REACTIONS (2)
  - Muscle atrophy [None]
  - Off label use [None]
